FAERS Safety Report 8244652-7 (Version None)
Quarter: 2012Q1

REPORT INFORMATION
  Report Type: 
  Country: None (occurrence: None)
  Receive Date: 20120329
  Receipt Date: 20111205
  Transmission Date: 20120608
  Serious: No
  Sender: FDA-Public Use
  Company Number: US-MYLANLABS-2011S1025114

PATIENT
  Age: 53 Year
  Sex: Male

DRUGS (11)
  1. FENTANYL-100 [Suspect]
     Indication: PAIN IN EXTREMITY
     Dosage: Q48H
     Route: 062
     Dates: start: 20080101
  2. XANAX [Concomitant]
     Indication: ANXIETY
  3. NYSTATIN [Concomitant]
     Indication: CARDIAC DISORDER
     Dates: start: 20050101
  4. PROTONIX [Concomitant]
     Indication: GASTRIC ULCER HAEMORRHAGE
     Dates: start: 20070101
  5. METOPROLOL SUCCINATE [Concomitant]
     Indication: CARDIAC DISORDER
     Dates: start: 20050101
  6. GABAPENTIN [Concomitant]
     Indication: NERVE COMPRESSION
  7. CELEBREX [Concomitant]
     Indication: ARTHRITIS
     Dates: start: 20110101
  8. OTHER RESPIRATORY SYSTEM PRODUCTS [Concomitant]
     Indication: CHRONIC OBSTRUCTIVE PULMONARY DISEASE
     Route: 055
  9. LUNESTA [Concomitant]
     Indication: INSOMNIA
  10. LISINOPRIL [Concomitant]
     Indication: CARDIAC DISORDER
     Dates: start: 20050101
  11. FENTANYL-100 [Suspect]
     Indication: BACK PAIN
     Dosage: Q48H
     Route: 062
     Dates: start: 20080101

REACTIONS (4)
  - DRUG EFFECT DECREASED [None]
  - BACK PAIN [None]
  - PAIN IN EXTREMITY [None]
  - SKIN WRINKLING [None]
